FAERS Safety Report 5149476-5 (Version None)
Quarter: 2006Q4

REPORT INFORMATION
  Report Type: 
  Country: None (occurrence: None)
  Receive Date: 20061113
  Receipt Date: 20050824
  Transmission Date: 20070319
  Serious: Yes (Death, Hospitalization)
  Sender: FDA-Public Use
  Company Number: DE-ROCHE-415517

PATIENT
  Age: 59 Year
  Sex: Female

DRUGS (67)
  1. DACLIZUMAB [Suspect]
     Route: 042
     Dates: start: 20050809, end: 20050809
  2. DACLIZUMAB [Suspect]
     Route: 042
     Dates: start: 20050815, end: 20050815
  3. MYCOPHENOLATE MOFETIL [Suspect]
     Route: 042
     Dates: start: 20050808, end: 20050910
  4. TACROLIMUS [Suspect]
     Dosage: DOSE ADJUSTED TO REACH PREDEFINED TARGET LEVELS.
     Route: 048
     Dates: start: 20050813, end: 20050818
  5. TACROLIMUS [Suspect]
     Route: 048
     Dates: start: 20050819, end: 20050910
  6. METHYLPREDNISOLONE [Suspect]
     Route: 065
     Dates: start: 20050808, end: 20050808
  7. PREDNISONE TAB [Suspect]
     Dosage: TAPERED BACK TO MAINTENANCE AFTER TREATMENT OF REJECTION.
     Route: 065
     Dates: start: 20050809, end: 20050920
  8. HYDROCORTISONE INTRAVENOUS [Suspect]
     Dosage: AT PERFUSION RATE OF 2.1 ML/HOUR
     Route: 041
     Dates: start: 20050920, end: 20050920
  9. ANTITHROMBIN III [Concomitant]
     Dates: start: 20050809, end: 20050910
  10. NOREPINEPHRINE HCL [Concomitant]
     Dates: start: 20050808
  11. TRIMETHOPRIM/SULFAMETHOXAZOLE FORTE [Concomitant]
     Dates: start: 20050809
  12. METOPROLOL SUCCINATE [Concomitant]
     Dates: start: 20050813
  13. CALCIUM [Concomitant]
     Dates: start: 20050809, end: 20050817
  14. CASPOFUNGIN [Concomitant]
     Dates: start: 20050822
  15. TPN ELECTROLYTES IN PLASTIC CONTAINER [Concomitant]
     Dates: start: 20050809
  16. GANCICLOVIR [Concomitant]
     Dates: start: 20050809
  17. PIRITRAMID [Concomitant]
     Dates: start: 20050814, end: 20050910
  18. DOPAMIN [Concomitant]
     Dates: start: 20050811, end: 20050815
  19. BLOOD, PACKED RED CELLS [Concomitant]
     Dates: start: 20050808, end: 20050910
  20. FIBRINOGEN [Concomitant]
     Dates: start: 20050808, end: 20050820
  21. HAES [Concomitant]
     Dates: start: 20050808, end: 20050910
  22. HEPARIN [Concomitant]
     Dates: start: 20050811
  23. LACTULOSE [Concomitant]
     Dates: start: 20050824, end: 20050901
  24. ALBUMIN (HUMAN) [Concomitant]
     Dates: start: 20050808, end: 20050904
  25. NPH INSULIN [Concomitant]
     Dates: start: 20050809
  26. POTASSIUM CHLORIDE [Concomitant]
     Dates: start: 20050816, end: 20050907
  27. GRANISETRON  HCL [Concomitant]
     Dates: start: 20050819, end: 20050908
  28. LEVOTHYROXINE SODIUM [Concomitant]
     Dates: start: 20050811
  29. FUROSEMIDE [Concomitant]
     Dates: start: 20050809, end: 20050816
  30. METOCLOPRAMIDE HCL [Concomitant]
     Dates: start: 20050814, end: 20050908
  31. MAGNESIUM [Concomitant]
     Dates: start: 20050809, end: 20050820
  32. NYSTATIN [Concomitant]
     Dates: start: 20050809
  33. 1 CONCOMITANT DRUG [Concomitant]
     Dosage: REPORTED AS AMBRAXOL
     Dates: start: 20060808
  34. SODIUM CHLORIDE [Concomitant]
     Dates: start: 20050815
  35. METAMIZOL [Concomitant]
     Dates: start: 20050809, end: 20050809
  36. NATRIUMPHOSPHAT [Concomitant]
     Dates: start: 20050809, end: 20050906
  37. SPIROLACTONE [Concomitant]
     Dates: start: 20050809, end: 20050811
  38. PANTOPRAZOL [Concomitant]
     Dates: start: 20050808
  39. ACETAMINOPHEN [Concomitant]
     Dates: start: 20050817, end: 20050901
  40. PPSB [Concomitant]
     Dates: start: 20050808, end: 20050810
  41. RANITIDINE [Concomitant]
     Dates: start: 20050815, end: 20050817
  42. RINGER'S IRRIGATION [Concomitant]
     Dates: start: 20050813, end: 20050824
  43. LEVOFLOXACIN [Concomitant]
     Dates: start: 20050810, end: 20050901
  44. APROTININ [Concomitant]
     Dates: start: 20050808, end: 20050910
  45. TORSEMIDE [Concomitant]
     Dates: start: 20050809, end: 20050817
  46. MUPIROCIN [Concomitant]
     Dates: start: 20050808
  47. IMIPENEM [Concomitant]
     Dates: start: 20050808, end: 20050819
  48. TEICOPLANIN [Concomitant]
     Dates: start: 20050810, end: 20050921
  49. CERULETID [Concomitant]
     Dates: start: 20050825, end: 20050825
  50. AMINO ACID INJ [Concomitant]
     Dates: start: 20050823
  51. NEOSTIGMINE METHYLSULPHATE [Concomitant]
     Dates: start: 20050811, end: 20050830
  52. SELENIUM SULFIDE [Concomitant]
     Dates: start: 20050826, end: 20050826
  53. PLATELETS [Concomitant]
     Dates: start: 20050810, end: 20050910
  54. VASOPRESSIN INJECTION [Concomitant]
     Dates: start: 20050810, end: 20050812
  55. CERNEVIT-12 [Concomitant]
     Dates: start: 20050809, end: 20050928
  56. PROPOFOL [Concomitant]
     Dates: start: 20050808, end: 20050910
  57. FACTOR XIII [Concomitant]
     Dates: start: 20050821, end: 20050821
  58. FRESH FROZEN PLASMA [Concomitant]
     Dates: start: 20050910, end: 20050910
  59. TPN [Concomitant]
     Dates: start: 20050809, end: 20050909
  60. POTASSIUM ACETATE [Concomitant]
     Dates: start: 20050904, end: 20050904
  61. POTASSIUM CHLORIDE [Concomitant]
     Dates: start: 20050808, end: 20050910
  62. PHYTOMENADION [Concomitant]
     Dates: start: 20050830, end: 20050906
  63. GLYCEROLTRINITRAT [Concomitant]
     Dates: start: 20050817, end: 20050831
  64. NORMOFUNDIN [Concomitant]
     Dates: start: 20050808, end: 20050824
  65. OSYROL LASIX [Concomitant]
     Dates: start: 20050809, end: 20050811
  66. CLEMASTIN [Concomitant]
     Dates: start: 20050814, end: 20050817
  67. OMEGAVEN [Concomitant]
     Dates: start: 20050815, end: 20050913

REACTIONS (2)
  - SEPSIS [None]
  - WOUND DEHISCENCE [None]
